FAERS Safety Report 5529647-6 (Version None)
Quarter: 2007Q4

REPORT INFORMATION
  Report Type: 
  Country: None (occurrence: None)
  Receive Date: 20071129
  Receipt Date: 20071120
  Transmission Date: 20080405
  Serious: Yes (Other)
  Sender: FDA-Public Use
  Company Number: JP-PFIZER INC-2007097574

PATIENT
  Age: 75 Year
  Sex: Female

DRUGS (3)
  1. NORVASC [Suspect]
     Indication: HYPERTENSION
     Dosage: DAILY DOSE:5MG
     Route: 048
     Dates: start: 20071111, end: 20071111
  2. DIOVAN [Suspect]
     Indication: HYPERTENSION
     Dosage: DAILY DOSE:80MG
     Route: 048
     Dates: start: 20071111, end: 20071111
  3. AMLODIN [Concomitant]
     Route: 048

REACTIONS (1)
  - ABNORMAL BEHAVIOUR [None]
